FAERS Safety Report 7805335-8 (Version None)
Quarter: 2011Q4

REPORT INFORMATION
  Report Type: 
  Country: None (occurrence: None)
  Receive Date: 20111010
  Receipt Date: 20110929
  Transmission Date: 20120403
  Serious: Yes (Hospitalization)
  Sender: FDA-Public Use
  Company Number: CA-ASTRAZENECA-2011SE59017

PATIENT
  Sex: Female

DRUGS (2)
  1. SEROQUEL [Suspect]
     Indication: BIPOLAR DISORDER
     Route: 048
  2. LITHIUM [Concomitant]
     Indication: BIPOLAR DISORDER

REACTIONS (5)
  - ADVERSE EVENT [None]
  - ANTIPSYCHOTIC DRUG LEVEL INCREASED [None]
  - RENAL FAILURE [None]
  - MOVEMENT DISORDER [None]
  - FEELING ABNORMAL [None]
